FAERS Safety Report 8766519 (Version 1)
Quarter: 2012Q4

REPORT INFORMATION
  Report Type: 
  Country: US (occurrence: US)
  Receive Date: 20120905
  Receipt Date: 20120905
  Transmission Date: 20130627
  Serious: Yes (Other)
  Sender: FDA-Public Use
  Company Number: US-ASTRAZENECA-2010SE42825

PATIENT
  Age: 59 Year
  Sex: Female

DRUGS (1)
  1. NEXIUM [Suspect]
     Route: 048

REACTIONS (7)
  - Cerebrovascular accident [Unknown]
  - Feeling abnormal [Unknown]
  - Dyspepsia [Unknown]
  - Dysgraphia [Unknown]
  - Dyspnoea [Unknown]
  - Intentional drug misuse [Unknown]
  - Drug dose omission [Unknown]
